FAERS Safety Report 20444647 (Version 1)
Quarter: 2022Q1

REPORT INFORMATION
  Report Type: Spontaneous
  Country: AR (occurrence: AR)
  Receive Date: 20220208
  Receipt Date: 20220208
  Transmission Date: 20220423
  Serious: Yes (Other)
  Sender: FDA-Public Use
  Company Number: AR-MYLANLABS-2022M1002636

PATIENT
  Age: 16 Year
  Sex: Female

DRUGS (6)
  1. CLOZAPINE [Suspect]
     Active Substance: CLOZAPINE
     Indication: Psychomotor hyperactivity
     Dosage: 100 MILLIGRAM (SEPTEMBER TO OCTOBER 2021)
     Dates: start: 2021
  2. CLOZAPINE [Suspect]
     Active Substance: CLOZAPINE
     Indication: Intentional self-injury
     Dosage: 50 MILLIGRAM, QD
  3. CLOZAPINE [Suspect]
     Active Substance: CLOZAPINE
     Indication: Persistent depressive disorder
  4. VALPROATE SODIUM [Concomitant]
     Active Substance: VALPROATE SODIUM
     Indication: Psychomotor hyperactivity
     Dosage: 500 MILLIGRAM, QD
  5. VALPROATE SODIUM [Concomitant]
     Active Substance: VALPROATE SODIUM
     Indication: Intentional self-injury
  6. VALPROATE SODIUM [Concomitant]
     Active Substance: VALPROATE SODIUM
     Indication: Persistent depressive disorder

REACTIONS (5)
  - Neutropenia [Recovered/Resolved]
  - Hypersomnia [Unknown]
  - Eosinophil count increased [Unknown]
  - Lymphocyte count increased [Unknown]
  - Haemoglobin decreased [Unknown]

NARRATIVE: CASE EVENT DATE: 20220108
